FAERS Safety Report 19195613 (Version 1)
Quarter: 2021Q2

REPORT INFORMATION
  Report Type: Spontaneous
  Country: US (occurrence: US)
  Receive Date: 20210429
  Receipt Date: 20210429
  Transmission Date: 20210717
  Serious: No
  Sender: FDA-Public Use
  Company Number: US-PFIZER INC-2021371935

PATIENT
  Age: 65 Year
  Sex: Female

DRUGS (1)
  1. XELJANZ [Suspect]
     Active Substance: TOFACITINIB CITRATE
     Dosage: 5 MG, UNK

REACTIONS (6)
  - Pain in extremity [Unknown]
  - Exfoliative rash [Unknown]
  - Peripheral swelling [Unknown]
  - Rash pruritic [Unknown]
  - Psoriasis [Unknown]
  - Rash [Unknown]
